FAERS Safety Report 25524316 (Version 2)
Quarter: 2025Q3

REPORT INFORMATION
  Report Type: Report from Study
  Country: US (occurrence: US)
  Receive Date: 20250707
  Receipt Date: 20250729
  Transmission Date: 20251020
  Serious: No
  Sender: ALEXION PHARMACEUTICALS
  Company Number: US-AstraZeneca-CH-00900390A

PATIENT
  Age: 37 Year
  Sex: Male
  Weight: 64 kg

DRUGS (18)
  1. SODIUM ZIRCONIUM CYCLOSILICATE [Suspect]
     Active Substance: SODIUM ZIRCONIUM CYCLOSILICATE
  2. ENGERIX-B [Concomitant]
     Active Substance: HEPATITIS B VIRUS SUBTYPE ADW2 HBSAG SURFACE PROTEIN ANTIGEN
  3. MIRCERA [Concomitant]
     Active Substance: METHOXY POLYETHYLENE GLYCOL-EPOETIN BETA
  4. VENOFER [Concomitant]
     Active Substance: IRON SUCROSE
     Dosage: 50 MILLIGRAM, QW
     Dates: start: 20250603
  5. ACETAMINOPHEN [Concomitant]
     Active Substance: ACETAMINOPHEN
  6. CLONIDINE [Concomitant]
     Active Substance: CLONIDINE
  7. DIPHENHYDRAMINE [Concomitant]
     Active Substance: DIPHENHYDRAMINE
     Dosage: 25 MILLIGRAM, ORAL, EVERY 4 HOURS AS NEEDED
     Dates: start: 20241218
  8. EPIPEN [Concomitant]
     Active Substance: EPINEPHRINE
  9. LOPERAMIDE [Concomitant]
     Active Substance: LOPERAMIDE
     Dosage: 2 MILLIGRAM, Q4H
     Dates: start: 20241218
  10. NITROSTAT [Concomitant]
     Active Substance: NITROGLYCERIN
  11. OXYGEN [Concomitant]
     Active Substance: OXYGEN
     Route: 065
  12. XPHOZAH [Concomitant]
     Active Substance: TENAPANOR HYDROCHLORIDE
     Dosage: 30 MILLIGRAM, BID
     Dates: start: 20250514
  13. LOSARTAN POTASSIUM [Concomitant]
     Active Substance: LOSARTAN POTASSIUM
     Dosage: 100 MILLIGRAM, QD
     Dates: start: 20250507
  14. NIFEDIPINE [Concomitant]
     Active Substance: NIFEDIPINE
     Dosage: 90 MILLIGRAM, QD
     Dates: start: 20250507
  15. SEVELAMER CARBONATE [Concomitant]
     Active Substance: SEVELAMER CARBONATE
     Dosage: 1600 MILLIGRAM, TID
     Dates: start: 20250220
  16. CARVEDILOL [Concomitant]
     Active Substance: CARVEDILOL
     Dosage: 25 MILLIGRAM, BID
     Dates: start: 20250212
  17. FOLIC ACID [Concomitant]
     Active Substance: FOLIC ACID
     Dosage: 1 MILLIGRAM, QD
     Dates: start: 20241222
  18. VITAMIN D [Concomitant]
     Active Substance: VITAMIN D NOS
     Dosage: 1.25 MILLIGRAM, QW
     Dates: start: 20241222

REACTIONS (1)
  - Blood potassium increased [Unknown]
